FAERS Safety Report 7382750-0 (Version None)
Quarter: 2011Q1

REPORT INFORMATION
  Report Type: 
  Country: None (occurrence: None)
  Receive Date: 20110330
  Receipt Date: 20110321
  Transmission Date: 20110831
  Serious: No
  Sender: FDA-Public Use
  Company Number: US-BIOGENIDEC-2011BI010761

PATIENT
  Age: 47 Year
  Sex: Female

DRUGS (1)
  1. TYSABRI [Suspect]
     Indication: MULTIPLE SCLEROSIS
     Route: 042
     Dates: start: 20101014

REACTIONS (5)
  - PHOTOSENSITIVITY REACTION [None]
  - LYMPH NODE PAIN [None]
  - HYPERACUSIS [None]
  - MUSCULOSKELETAL PAIN [None]
  - HEADACHE [None]
